FAERS Safety Report 5957322-2 (Version None)
Quarter: 2008Q4

REPORT INFORMATION
  Report Type: 
  Country: None (occurrence: None)
  Receive Date: 20081118
  Receipt Date: 20081104
  Transmission Date: 20090506
  Serious: Yes (Life-Threatening, Hospitalization, Other)
  Sender: FDA-Public Use
  Company Number: IT-B.I. PHARMACEUTICALS,INC./RIDGEFIELD-2008-DE-06618GD

PATIENT
  Age: 67 Year
  Sex: Male

DRUGS (5)
  1. PRAMIPEXOLE DIHYDROCHLORIDE [Suspect]
     Indication: PARKINSON'S DISEASE
     Dosage: 3MG
  2. L-DOPA+CARBIDOPA [Suspect]
     Indication: PARKINSON'S DISEASE
     Dosage: 1200 MG L-DOPA/300 MG CARBIDOPA
  3. ENTACAPONE [Suspect]
     Indication: PARKINSON'S DISEASE
     Dosage: 1200MG
  4. L-DOPA-METHYL-ESTER+CARBIDOPA [Suspect]
     Indication: PARKINSON'S DISEASE
     Dosage: 100 MG L-DOPA-METHYL-ESTER/25 MG CARBIDOPA AS REQUIRED
  5. QUETIAPINE FUMARATE [Suspect]
     Indication: PARKINSON'S DISEASE
     Dosage: 25MG

REACTIONS (13)
  - ACUTE RESPIRATORY FAILURE [None]
  - AKINESIA [None]
  - BLOOD CREATINE PHOSPHOKINASE INCREASED [None]
  - CONFUSIONAL STATE [None]
  - CONSTIPATION [None]
  - DECUBITUS ULCER [None]
  - DRUG EFFECT DECREASED [None]
  - DYSKINESIA [None]
  - HALLUCINATION [None]
  - MYOGLOBIN BLOOD INCREASED [None]
  - PYREXIA [None]
  - SOMNOLENCE [None]
  - WEIGHT DECREASED [None]
